FAERS Safety Report 12894392 (Version 2)
Quarter: 2016Q4

REPORT INFORMATION
  Report Type: Spontaneous
  Country: US (occurrence: US)
  Receive Date: 20161028
  Receipt Date: 20161130
  Transmission Date: 20170207
  Serious: Yes (Other)
  Sender: FDA-Public Use
  Company Number: US-TEVA-707010USA

PATIENT
  Sex: Female

DRUGS (1)
  1. CARTIA XT [Suspect]
     Active Substance: DILTIAZEM HYDROCHLORIDE
     Route: 065

REACTIONS (5)
  - Rhinorrhoea [Unknown]
  - Atrial fibrillation [Unknown]
  - Product substitution issue [Unknown]
  - Sneezing [Unknown]
  - Palpitations [Unknown]
